FAERS Safety Report 8794261 (Version 1)
Quarter: 2012Q4

REPORT INFORMATION
  Report Type: 
  Country: FR (occurrence: FR)
  Receive Date: 20120918
  Receipt Date: 20120918
  Transmission Date: 20130627
  Serious: Yes (Other)
  Sender: FDA-Public Use
  Company Number: FR-AMGEN-FRASP2012058267

PATIENT

DRUGS (2)
  1. VECTIBIX [Suspect]
     Indication: PRODUCT USED FOR UNKNOWN INDICATION
     Dosage: UNK
  2. FOLFIRI [Concomitant]

REACTIONS (4)
  - Generalised erythema [Unknown]
  - Rash [Unknown]
  - Weight decreased [Unknown]
  - Eye disorder [Unknown]
